FAERS Safety Report 8927981 (Version 1)
Quarter: 2012Q4

REPORT INFORMATION
  Report Type: Spontaneous
  Country: US (occurrence: None)
  Receive Date: 20121120
  Receipt Date: 20121120
  Transmission Date: 20130627
  Serious: Yes (Other)
  Sender: FDA-Public Use
  Company Number: TPA2012A08952

PATIENT
  Age: 47 Year
  Sex: Female
  Weight: 74.84 kg

DRUGS (1)
  1. DEXILANT [Suspect]
     Indication: ACID REFLUX (ESOPHAGEAL)
     Route: 048
     Dates: start: 201207, end: 201210

REACTIONS (3)
  - Heart rate increased [None]
  - Myalgia [None]
  - Cardiac aneurysm [None]
